FAERS Safety Report 9058882 (Version 4)
Quarter: 2013Q1

REPORT INFORMATION
  Report Type: Spontaneous
  Country: US (occurrence: US)
  Receive Date: 20130211
  Receipt Date: 20130329
  Transmission Date: 20140127
  Serious: Yes (Death, Other)
  Sender: FDA-Public Use
  Company Number: US-ABBOTT-13P-163-1046614-00

PATIENT
  Age: 63 None
  Sex: Female

DRUGS (24)
  1. HUMIRA [Suspect]
     Indication: RHEUMATOID ARTHRITIS
     Dates: start: 20111205
  2. PAXIL [Concomitant]
     Indication: PRODUCT USED FOR UNKNOWN INDICATION
  3. UNKNOWN MEDICATION FOR OSTEOPOROSIS [Concomitant]
     Indication: OSTEOPOROSIS
  4. UNKNOWN MEDICATION FOR FIBROMYALGIA [Concomitant]
     Indication: FIBROMYALGIA
  5. UNKNOWN MEDICATION [Concomitant]
     Indication: PRODUCT USED FOR UNKNOWN INDICATION
  6. PREDNISONE [Concomitant]
     Indication: PRODUCT USED FOR UNKNOWN INDICATION
     Route: 048
     Dates: start: 20120816
  7. MORPHINE SULFATE CR [Concomitant]
     Dosage: AT BEDTIME
     Route: 048
     Dates: start: 20120816
  8. FERROUS SULFATE [Concomitant]
     Indication: PRODUCT USED FOR UNKNOWN INDICATION
     Route: 048
     Dates: start: 20120816
  9. GABAPENTIN [Concomitant]
     Indication: PRODUCT USED FOR UNKNOWN INDICATION
     Dates: start: 20120731
  10. METOPROLOL SUCCINATE [Concomitant]
     Indication: PRODUCT USED FOR UNKNOWN INDICATION
     Route: 048
     Dates: start: 20120524
  11. OMEPRAZOLE [Concomitant]
     Indication: PRODUCT USED FOR UNKNOWN INDICATION
     Dates: start: 20120621
  12. VENLAFAXINE HYDROCHLORIDE [Concomitant]
     Indication: PRODUCT USED FOR UNKNOWN INDICATION
     Route: 048
     Dates: start: 20120621
  13. LEFLUNOMIDE [Concomitant]
     Indication: PRODUCT USED FOR UNKNOWN INDICATION
     Route: 048
     Dates: start: 20120521
  14. OSCAL D [Concomitant]
     Indication: PRODUCT USED FOR UNKNOWN INDICATION
     Route: 048
     Dates: start: 20011220
  15. DAILY MULTIPLE VITAMINS [Concomitant]
     Indication: PRODUCT USED FOR UNKNOWN INDICATION
     Route: 048
     Dates: start: 20120113
  16. OYSTER SHELL CALCIUM/D [Concomitant]
     Indication: PRODUCT USED FOR UNKNOWN INDICATION
     Route: 048
     Dates: start: 20120113
  17. VITAMIN E BLEND [Concomitant]
     Indication: PRODUCT USED FOR UNKNOWN INDICATION
     Route: 048
     Dates: start: 20120113
  18. VITAMIN C [Concomitant]
     Indication: PRODUCT USED FOR UNKNOWN INDICATION
     Route: 048
     Dates: start: 20120113
  19. VITAMIN A [Concomitant]
     Indication: PRODUCT USED FOR UNKNOWN INDICATION
     Route: 048
     Dates: start: 20120113
  20. CELEBREX [Concomitant]
     Indication: PRODUCT USED FOR UNKNOWN INDICATION
     Route: 048
     Dates: start: 20111221
  21. BLACK COHOSH-FLAXSEED-SOY [Concomitant]
     Indication: PRODUCT USED FOR UNKNOWN INDICATION
     Route: 048
     Dates: start: 20081210
  22. EPIPEN [Concomitant]
     Indication: ARTHROPOD STING
     Dosage: 1 DEVICE
     Route: 050
     Dates: start: 20120816
  23. OXYCODONE-ACETAMINOPHEN [Concomitant]
     Indication: BACK PAIN
     Dosage: 1-2 TABLET EVERU 4-6 HOURS AS NEEDED
     Route: 048
  24. ALPRAZOLAM [Concomitant]
     Indication: ANXIETY
     Dosage: TWICE DAILY AS NEEDED
     Route: 048
     Dates: start: 20120622

REACTIONS (13)
  - Myocardial infarction [Fatal]
  - Thrombosis [Fatal]
  - Embolism [Fatal]
  - Fall [Fatal]
  - Head injury [Fatal]
  - Spinal cord injury [Fatal]
  - Hypoxia [Fatal]
  - Respiratory failure [Fatal]
  - Cardiogenic shock [Fatal]
  - Coronary artery occlusion [Fatal]
  - Cardiac arrest [Fatal]
  - Brain injury [Fatal]
  - Surgery [Unknown]
